FAERS Safety Report 5504301-5 (Version None)
Quarter: 2007Q4

REPORT INFORMATION
  Report Type: 
  Country: None (occurrence: None)
  Receive Date: 20071101
  Receipt Date: 20071024
  Transmission Date: 20080405
  Serious: Yes (Death, Other)
  Sender: FDA-Public Use
  Company Number: US-PURDUE-USA_2007_0029908

PATIENT
  Age: 80 Year
  Sex: Male

DRUGS (1)
  1. OXYCONTIN [Suspect]
     Indication: NEURALGIA
     Dosage: 80 MG, Q12H
     Route: 048

REACTIONS (3)
  - FALL [None]
  - HYPOAESTHESIA [None]
  - INJURY [None]
